FAERS Safety Report 7717825-7 (Version None)
Quarter: 2011Q3

REPORT INFORMATION
  Report Type: 
  Country: None (occurrence: None)
  Receive Date: 20110824
  Receipt Date: 20110812
  Transmission Date: 20111222
  Serious: Yes (Other)
  Sender: FDA-Public Use
  Company Number: GGEL20110800782

PATIENT
  Age: 69 Year
  Sex: Female

DRUGS (1)
  1. METFORMIN HCL [Suspect]
     Dosage: ORAL
     Route: 048

REACTIONS (7)
  - LACTIC ACIDOSIS [None]
  - METABOLIC ACIDOSIS [None]
  - HAEMODIALYSIS [None]
  - SLUGGISHNESS [None]
  - TOXICITY TO VARIOUS AGENTS [None]
  - SEPSIS [None]
  - INTESTINAL INFARCTION [None]
